FAERS Safety Report 13023926 (Version 1)
Quarter: 2016Q4

REPORT INFORMATION
  Report Type: Spontaneous
  Country: CN (occurrence: CN)
  Receive Date: 20161213
  Receipt Date: 20161213
  Transmission Date: 20170207
  Serious: Yes (Other)
  Sender: FDA-Public Use
  Company Number: CN-ASTRAZENECA-2016SF30713

PATIENT
  Sex: Female
  Weight: 56 kg

DRUGS (2)
  1. ESOMEPRAZOLE SODIUM. [Suspect]
     Active Substance: ESOMEPRAZOLE SODIUM
     Indication: ABDOMINAL PAIN UPPER
     Route: 042
     Dates: start: 20160718, end: 20160718
  2. SODIUM CHLORIDE. [Concomitant]
     Active Substance: SODIUM CHLORIDE
     Indication: ABDOMINAL PAIN UPPER
     Route: 041
     Dates: start: 20160718, end: 20160718

REACTIONS (5)
  - Cold sweat [Unknown]
  - Exposure during pregnancy [Unknown]
  - Dyspnoea [Recovering/Resolving]
  - Hypoaesthesia [Unknown]
  - Dizziness [Unknown]
